FAERS Safety Report 7166133-4 (Version None)
Quarter: 2010Q4

REPORT INFORMATION
  Report Type: 
  Country: None (occurrence: None)
  Receive Date: 20101216
  Receipt Date: 20101206
  Transmission Date: 20110411
  Serious: Yes (Death, Hospitalization)
  Sender: FDA-Public Use
  Company Number: US-JNJFOC-20090806440

PATIENT
  Sex: Male
  Weight: 63.5 kg

DRUGS (3)
  1. EXTRA STRENGTH TYLENOL [Suspect]
     Indication: HEADACHE
  2. EXTRA STRENGTH TYLENOL [Suspect]
     Indication: MALAISE
  3. TYLENOL COLD + FLU PRODUCT [Suspect]
     Indication: MALAISE

REACTIONS (39)
  - ACCIDENTAL DEATH [None]
  - ACCIDENTAL OVERDOSE [None]
  - ACTIVATED PARTIAL THROMBOPLASTIN TIME PROLONGED [None]
  - ACUTE HEPATIC FAILURE [None]
  - AGGRESSION [None]
  - AGITATION [None]
  - BLOOD CREATINE PHOSPHOKINASE INCREASED [None]
  - BLOOD MAGNESIUM INCREASED [None]
  - BLOOD PHOSPHORUS DECREASED [None]
  - BLOOD SODIUM DECREASED [None]
  - BRAIN DEATH [None]
  - BRAIN HERNIATION [None]
  - BRAIN OEDEMA [None]
  - CENTRAL NERVOUS SYSTEM NECROSIS [None]
  - CONFUSIONAL STATE [None]
  - DRUG ADMINISTRATION ERROR [None]
  - DRUG TOXICITY [None]
  - EXPIRED DRUG ADMINISTERED [None]
  - HAEMATOCRIT DECREASED [None]
  - HAEMOGLOBIN DECREASED [None]
  - HEPATIC FAILURE [None]
  - HEPATIC NECROSIS [None]
  - HYPOTENSION [None]
  - INCOHERENT [None]
  - INTERNATIONAL NORMALISED RATIO INCREASED [None]
  - NEUROLOGICAL DECOMPENSATION [None]
  - OESOPHAGEAL CANDIDIASIS [None]
  - PAPILLOEDEMA [None]
  - PLATELET COUNT DECREASED [None]
  - PROTEIN TOTAL DECREASED [None]
  - RENAL FAILURE ACUTE [None]
  - RESPIRATORY RATE INCREASED [None]
  - RESTLESSNESS [None]
  - SEPTIC SHOCK [None]
  - SINUS TACHYCARDIA [None]
  - TROPONIN I INCREASED [None]
  - UNRESPONSIVE TO STIMULI [None]
  - URINARY BLADDER HAEMORRHAGE [None]
  - WHITE BLOOD CELL COUNT INCREASED [None]
